FAERS Safety Report 8456411-0 (Version None)
Quarter: 2012Q2

REPORT INFORMATION
  Report Type: 
  Country: None (occurrence: None)
  Receive Date: 20120621
  Receipt Date: 20120606
  Transmission Date: 20120825
  Serious: Yes (Other)
  Sender: FDA-Public Use
  Company Number: DE-WATSON-2012-10543

PATIENT
  Age: 37 Year
  Sex: Male

DRUGS (5)
  1. PREDNISOLONE [Suspect]
     Indication: CHEMOTHERAPY
     Dosage: 100 MG, DAY1-5
     Route: 065
  2. VINCRISTINE [Suspect]
     Indication: CHEMOTHERAPY
     Dosage: 1.4 MG/M2, DAY1
  3. CYCLOPHOSPHAMIDE [Suspect]
     Indication: CHEMOTHERAPY
     Dosage: 750 MG/M2, DAY1
     Route: 065
  4. DOXORUBICIN HCL [Suspect]
     Indication: CHEMOTHERAPY
     Dosage: 50 MG/M2, DAY1
     Route: 065
  5. BENDAMUSTINE HYDROCHLORIDE [Suspect]
     Indication: CHEMOTHERAPY
     Dosage: 90 MG/M2, DAY1-2

REACTIONS (1)
  - NEUTROPENIA [None]
